FAERS Safety Report 25681396 (Version 1)
Quarter: 2025Q3

REPORT INFORMATION
  Report Type: Spontaneous
  Country: US (occurrence: None)
  Receive Date: 20250813
  Receipt Date: 20250813
  Transmission Date: 20251021
  Serious: Yes (Life-Threatening, Hospitalization)
  Sender: FDA-CTU
  Company Number: None

PATIENT
  Age: 14 Year
  Sex: Male
  Weight: 65 kg

DRUGS (4)
  1. ORAJEL GUM PAIN 3X MEDICATED [Suspect]
     Active Substance: BENZOCAINE\MENTHOL\ZINC CHLORIDE
     Indication: Aphthous ulcer
     Dosage: OTHER STRENGTH : TOPICAL GEL;?OTHER QUANTITY : 4 SMALL AMOUNT ON GU;?FREQUENCY : 4 TIMES A DAY;?
     Route: 048
     Dates: start: 20200901, end: 20250808
  2. ORAJEL GUM PAIN 3X MEDICATED [Suspect]
     Active Substance: BENZOCAINE\MENTHOL\ZINC CHLORIDE
     Indication: Dental caries
  3. MOTRIN [Concomitant]
     Active Substance: IBUPROFEN
  4. canker dore [Concomitant]

REACTIONS (7)
  - Fatigue [None]
  - Cyanosis [None]
  - Pallor [None]
  - Oxygen saturation decreased [None]
  - Methaemoglobinaemia [None]
  - Accidental overdose [None]
  - Accidental exposure to product by child [None]

NARRATIVE: CASE EVENT DATE: 20250808
